FAERS Safety Report 5069684-1 (Version None)
Quarter: 2006Q3

REPORT INFORMATION
  Report Type: 
  Country: None (occurrence: None)
  Receive Date: 20060802
  Receipt Date: 20060802
  Transmission Date: 20061208
  Serious: No
  Sender: FDA-Public Use
  Company Number: None

PATIENT
  Sex: Male
  Weight: 96.4 kg

DRUGS (2)
  1. CAPECITABINE [Suspect]
     Indication: BLADDER CANCER
     Dosage: 800MG   BID  D1-14   PO
     Route: 048
     Dates: start: 20060717, end: 20060731
  2. GEMCITABINE [Suspect]
     Indication: BLADDER CANCER
     Dosage: 1260MG   D1, D8    IV
     Route: 042
     Dates: start: 20060717, end: 20060724

REACTIONS (1)
  - NEUTROPHIL COUNT DECREASED [None]
